FAERS Safety Report 18928148 (Version 2)
Quarter: 2021Q1

REPORT INFORMATION
  Report Type: Report from Study
  Country: US (occurrence: US)
  Receive Date: 20210223
  Receipt Date: 20210316
  Transmission Date: 20210420
  Serious: Yes (Other)
  Sender: FDA-Public Use
  Company Number: NVSC2021US034260

PATIENT
  Sex: Male

DRUGS (1)
  1. XIIDRA [Suspect]
     Active Substance: LIFITEGRAST
     Indication: PRODUCT USED FOR UNKNOWN INDICATION
     Dosage: UNK
     Route: 065

REACTIONS (7)
  - Eye irritation [Unknown]
  - Eye disorder [Unknown]
  - Eye pain [Unknown]
  - Product dose omission issue [Unknown]
  - Foreign body sensation in eyes [Unknown]
  - Dry eye [Unknown]
  - Pain [Unknown]
